FAERS Safety Report 8221281-2 (Version None)
Quarter: 2012Q1

REPORT INFORMATION
  Report Type: 
  Country: None (occurrence: None)
  Receive Date: 20120320
  Receipt Date: 20120314
  Transmission Date: 20120608
  Serious: Yes (Death, Hospitalization, Other)
  Sender: FDA-Public Use
  Company Number: PHHY2012DE022166

PATIENT
  Sex: Male
  Weight: 66 kg

DRUGS (2)
  1. ZOMETA [Suspect]
     Indication: BONE DISORDER
     Dosage: 4 MG, UNK
     Route: 042
     Dates: start: 20101014, end: 20110412
  2. NAVELBINE [Concomitant]
     Dosage: 100MG/WEEK
     Dates: start: 20110120, end: 20110412

REACTIONS (10)
  - HEPATIC STEATOSIS [None]
  - METASTASES TO LIVER [None]
  - METASTASES TO BONE [None]
  - OSTEOCHONDROSIS [None]
  - NEOPLASM PROGRESSION [None]
  - GENERAL PHYSICAL HEALTH DETERIORATION [None]
  - CHOLELITHIASIS [None]
  - RENAL CYST [None]
  - PAIN [None]
  - METASTASES TO CENTRAL NERVOUS SYSTEM [None]
